FAERS Safety Report 10481122 (Version 2)
Quarter: 2014Q4

REPORT INFORMATION
  Report Type: Spontaneous
  Country: US (occurrence: US)
  Receive Date: 20140929
  Receipt Date: 20141014
  Transmission Date: 20150528
  Serious: Yes (Other)
  Sender: FDA-Public Use
  Company Number: US-SA-2014SA130985

PATIENT
  Age: 89 Year
  Sex: Male

DRUGS (2)
  1. PLAVIX [Suspect]
     Active Substance: CLOPIDOGREL BISULFATE
     Route: 065
  2. RANEXA [Concomitant]
     Active Substance: RANOLAZINE

REACTIONS (3)
  - Renal impairment [Unknown]
  - Cardiac operation [Unknown]
  - Stent placement [Unknown]
